FAERS Safety Report 12996130 (Version 2)
Quarter: 2017Q1

REPORT INFORMATION
  Report Type: Other
  Country: GB (occurrence: CA)
  Receive Date: 20161202
  Receipt Date: 20170303
  Transmission Date: 20170428
  Serious: Yes (Life-Threatening, Hospitalization, Other)
  Sender: FDA-Public Use
  Company Number: CA-INTERNATIONAL MEDICATION SYSTEMS, LIMITED-1060358

PATIENT
  Age: 40 Year
  Sex: Female
  Weight: 81 kg

DRUGS (16)
  1. FAMOTIDINE. [Concomitant]
     Active Substance: FAMOTIDINE
  2. SALBUTAMOL [Concomitant]
     Active Substance: ALBUTEROL
  3. ALBUMIN (HUMAN) [Concomitant]
     Active Substance: ALBUMIN HUMAN
  4. DIPHENHYDRAMINE. [Concomitant]
     Active Substance: DIPHENHYDRAMINE
  5. EPINEPHRINE. [Suspect]
     Active Substance: EPINEPHRINE
     Indication: ANAPHYLACTIC REACTION
     Route: 040
  6. VASOPRESSIN. [Concomitant]
     Active Substance: VASOPRESSIN
     Route: 040
  7. NOREPINEPHRINE [Concomitant]
     Active Substance: NOREPINEPHRINE\NOREPINEPHRINE BITARTRATE
  8. PHENYLEPHRINE [Concomitant]
     Active Substance: PHENYLEPHRINE\PHENYLEPHRINE HYDROCHLORIDE
     Route: 040
  9. FENTANYL. [Concomitant]
     Active Substance: FENTANYL
     Route: 042
  10. ROCURONIUM [Concomitant]
     Active Substance: ROCURONIUM BROMIDE
     Route: 042
  11. NOREPINEPHRINE [Concomitant]
     Active Substance: NOREPINEPHRINE\NOREPINEPHRINE BITARTRATE
  12. HYDROCORTISONE. [Concomitant]
     Active Substance: HYDROCORTISONE
  13. CHLORHEXIDINE GLUCONATE. [Concomitant]
     Active Substance: CHLORHEXIDINE GLUCONATE
  14. PROPOFOL. [Concomitant]
     Active Substance: PROPOFOL
     Route: 042
  15. PHENYLEPHRINE [Concomitant]
     Active Substance: PHENYLEPHRINE\PHENYLEPHRINE HYDROCHLORIDE
     Route: 041
  16. MIDAZOLAM [Concomitant]
     Active Substance: MIDAZOLAM HYDROCHLORIDE
     Route: 042

REACTIONS (5)
  - Cardiogenic shock [Recovered/Resolved]
  - Left ventricle outflow tract obstruction [Recovered/Resolved]
  - Treatment failure [Recovered/Resolved]
  - Anaphylactic reaction [Recovered/Resolved]
  - Drug hypersensitivity [Recovered/Resolved]
